FAERS Safety Report 9242360 (Version 1)
Quarter: 2013Q2

REPORT INFORMATION
  Report Type: Spontaneous
  Country: US (occurrence: US)
  Receive Date: 20130419
  Receipt Date: 20130419
  Transmission Date: 20140414
  Serious: No
  Sender: FDA-Public Use
  Company Number: US-PFIZER INC-2013120718

PATIENT
  Sex: Female
  Weight: 74.83 kg

DRUGS (3)
  1. PRISTIQ [Suspect]
     Indication: DEPRESSION
     Dosage: 100 MG, DAILY
  2. PRISTIQ [Suspect]
     Dosage: 300 MG (100 MG X 3) DAILY
  3. SYNTHROID [Concomitant]
     Indication: THYROID DISORDER
     Dosage: 150 UG, DAILY

REACTIONS (3)
  - Drug ineffective [Unknown]
  - Hot flush [Unknown]
  - Overdose [Unknown]
